FAERS Safety Report 5280528-5 (Version None)
Quarter: 2007Q1

REPORT INFORMATION
  Report Type: 
  Country: None (occurrence: None)
  Receive Date: 20070329
  Receipt Date: 20070315
  Transmission Date: 20070707
  Serious: Yes (Other)
  Sender: FDA-Public Use
  Company Number: US-KINGPHARMUSA00001-K200700315

PATIENT

DRUGS (4)
  1. SEPTRA [Suspect]
     Indication: NASOPHARYNGITIS
     Route: 048
  2. SEPTRA [Suspect]
     Dosage: UNK, UNK
  3. SEPTRA [Suspect]
     Dosage: 5 ML, UNK
     Route: 048
  4. BRONQUIDIAZINA [Suspect]

REACTIONS (8)
  - CONJUNCTIVAL HYPERAEMIA [None]
  - EYE PAIN [None]
  - NAUSEA [None]
  - PRURITUS [None]
  - UVEITIS [None]
  - VISION BLURRED [None]
  - VISUAL ACUITY REDUCED [None]
  - VOMITING [None]
